FAERS Safety Report 5519838-2 (Version None)
Quarter: 2007Q4

REPORT INFORMATION
  Report Type: 
  Country: None (occurrence: None)
  Receive Date: 20071116
  Receipt Date: 20070906
  Transmission Date: 20080405
  Serious: Yes (Other)
  Sender: FDA-Public Use
  Company Number: A0681604A

PATIENT
  Sex: Female

DRUGS (2)
  1. COREG CR [Suspect]
     Route: 048
     Dates: start: 20070601
  2. COREG [Suspect]
     Dosage: 12.5MG TWICE PER DAY
     Route: 048

REACTIONS (2)
  - VISION BLURRED [None]
  - VISUAL ACUITY REDUCED [None]
